FAERS Safety Report 9564732 (Version 1)
Quarter: 2013Q3

REPORT INFORMATION
  Report Type: Spontaneous
  Country: US (occurrence: US)
  Receive Date: 20130930
  Receipt Date: 20130930
  Transmission Date: 20140515
  Serious: No
  Sender: FDA-Public Use
  Company Number: US-PFIZER INC-2013278544

PATIENT
  Age: 68 Year
  Sex: Female
  Weight: 70.3 kg

DRUGS (1)
  1. VENLAFAXINE HCL [Suspect]
     Indication: HOT FLUSH
     Dosage: 47.5 MG, DAILY
     Route: 048

REACTIONS (3)
  - Abnormal dreams [Recovered/Resolved]
  - Drug ineffective for unapproved indication [Recovered/Resolved]
  - Off label use [Recovered/Resolved]
